FAERS Safety Report 16703263 (Version 1)
Quarter: 2019Q3

REPORT INFORMATION
  Report Type: Spontaneous
  Country: AE (occurrence: AE)
  Receive Date: 20190814
  Receipt Date: 20190814
  Transmission Date: 20191004
  Serious: Yes (Other)
  Sender: FDA-Public Use
  Company Number: AE-FRESENIUS KABI-FK201908931

PATIENT
  Age: 13 Year
  Sex: Male

DRUGS (3)
  1. VANCOMYCIN (MANUFACTURER UNKNOWN) [Suspect]
     Active Substance: VANCOMYCIN
     Indication: SEPTIC EMBOLUS
     Dosage: UNKNOWN
     Route: 065
  2. RIFAMPIN (MANUFACTURER UNKNOWN) [Suspect]
     Active Substance: RIFAMPIN
     Indication: SEPTIC EMBOLUS
     Dosage: UNKNOWN
     Route: 065
  3. GENTAMICIN (MANUFACTURER UNKNOWN) [Suspect]
     Active Substance: GENTAMICIN
     Indication: SEPTIC EMBOLUS
     Dosage: UNKNOWN
     Route: 065

REACTIONS (1)
  - Acute kidney injury [Unknown]
